FAERS Safety Report 24742818 (Version 3)
Quarter: 2025Q2

REPORT INFORMATION
  Report Type: Spontaneous
  Country: FR (occurrence: FR)
  Receive Date: 20241217
  Receipt Date: 20250618
  Transmission Date: 20250716
  Serious: Yes (Hospitalization)
  Sender: PFIZER
  Company Number: FR-ROCHE-10000142061

PATIENT
  Age: 44 Year
  Sex: Female
  Weight: 72 kg

DRUGS (9)
  1. CARBOPLATIN [Suspect]
     Active Substance: CARBOPLATIN
     Indication: Triple negative breast cancer
     Dosage: 379 MG, EVERY 3 WEEKS
     Route: 042
     Dates: start: 20240809, end: 20241022
  2. CARBOPLATIN [Suspect]
     Active Substance: CARBOPLATIN
     Route: 042
  3. DOXORUBICIN HYDROCHLORIDE [Suspect]
     Active Substance: DOXORUBICIN HYDROCHLORIDE
     Indication: Triple negative breast cancer
     Dates: start: 20241112
  4. TIRAGOLUMAB [Suspect]
     Active Substance: TIRAGOLUMAB
     Indication: Triple negative breast cancer
     Dosage: 600 MG, EVERY 3 WEEKS, INFUSION
     Route: 042
     Dates: start: 20240809, end: 20241112
  5. TIRAGOLUMAB [Suspect]
     Active Substance: TIRAGOLUMAB
     Route: 042
  6. ATEZOLIZUMAB [Suspect]
     Active Substance: ATEZOLIZUMAB
     Indication: Triple negative breast cancer
     Dosage: 1200 MG, EVERY 3 WEEKS, INFUSION
     Route: 042
     Dates: start: 20240809, end: 20241112
  7. ATEZOLIZUMAB [Suspect]
     Active Substance: ATEZOLIZUMAB
     Route: 042
  8. PACLITAXEL [Suspect]
     Active Substance: PACLITAXEL
     Indication: Triple negative breast cancer
     Dosage: 185 MG, EVERY 3 WEEKS; D1, D8, D15 OF EVERY 28-DAY CYCLE; INFUSION,ON 22-OCT-2024, SHE RECEIVED MOST
     Route: 042
     Dates: start: 20240809, end: 20241022
  9. CYCLOPHOSPHAMIDE [Suspect]
     Active Substance: CYCLOPHOSPHAMIDE
     Indication: Triple negative breast cancer
     Dates: start: 20241112

REACTIONS (2)
  - Febrile bone marrow aplasia [Recovered/Resolved]
  - Off label use [Unknown]

NARRATIVE: CASE EVENT DATE: 20240409
